FAERS Safety Report 4452382-2 (Version None)
Quarter: 2004Q3

REPORT INFORMATION
  Report Type: 
  Country: None (occurrence: None)
  Receive Date: 20040917
  Receipt Date: 20040909
  Transmission Date: 20050211
  Serious: Yes (Life-Threatening)
  Sender: FDA-Public Use
  Company Number: PHRM2004FR02766

PATIENT
  Age: 57 Year
  Sex: Male

DRUGS (1)
  1. LESCOL [Suspect]
     Route: 048

REACTIONS (7)
  - ANURIA [None]
  - CONVULSION [None]
  - DYSURIA [None]
  - FATIGUE [None]
  - INTRACRANIAL PRESSURE INCREASED [None]
  - LOSS OF CONSCIOUSNESS [None]
  - MUSCLE CRAMP [None]
